FAERS Safety Report 18266164 (Version 2)
Quarter: 2020Q3

REPORT INFORMATION
  Report Type: Spontaneous
  Country: CN (occurrence: CN)
  Receive Date: 20200915
  Receipt Date: 20200930
  Transmission Date: 20201103
  Serious: Yes (Hospitalization, Other)
  Sender: FDA-Public Use
  Company Number: CN-ALKEM LABORATORIES LIMITED-CN-ALKEM-2020-05743

PATIENT
  Age: 7 Year
  Sex: Male
  Weight: 30 kg

DRUGS (11)
  1. PREDNIOSNE [Suspect]
     Active Substance: PREDNISONE
     Dosage: 25 MILLIGRAM, QD
     Route: 048
     Dates: start: 20170821
  2. PREDNIOSNE [Suspect]
     Active Substance: PREDNISONE
     Dosage: 25 MILLIGRAM, QD
     Route: 048
     Dates: start: 20171022, end: 20180124
  3. CYCLOPHOSPHAMIDE. [Suspect]
     Active Substance: CYCLOPHOSPHAMIDE
     Dosage: 188.2 MILLIGRAM/KILOGRAM
     Route: 042
     Dates: start: 20170313, end: 20170822
  4. MYCOPHENOLATE MOFETIL. [Suspect]
     Active Substance: MYCOPHENOLATE MOFETIL
     Indication: NEPHROTIC SYNDROME
     Dosage: 0.25 GRAM, BID
     Route: 048
     Dates: start: 20171016, end: 20171023
  5. PREDNIOSNE [Suspect]
     Active Substance: PREDNISONE
     Dosage: 13.3 MILLIGRAM, TID
     Route: 048
     Dates: start: 2017, end: 20170417
  6. PREDNIOSNE [Suspect]
     Active Substance: PREDNISONE
     Dosage: 20 MILLIGRAM, QD
     Route: 041
     Dates: start: 20180125, end: 20180221
  7. METHYLPREDNISOLONE. [Suspect]
     Active Substance: METHYLPREDNISOLONE
     Indication: NEPHROTIC SYNDROME
     Dosage: 15 MILLIGRAM/KILOGRAM
     Route: 041
     Dates: start: 20171019, end: 20171021
  8. PREDNIOSNE [Suspect]
     Active Substance: PREDNISONE
     Indication: NEPHROTIC SYNDROME
     Dosage: UNK
     Route: 065
     Dates: start: 201612
  9. PREDNIOSNE [Suspect]
     Active Substance: PREDNISONE
     Dosage: 25 MILLIGRAM, QD
     Route: 048
     Dates: start: 20170921, end: 20171019
  10. PREDNIOSNE [Suspect]
     Active Substance: PREDNISONE
     Dosage: 35 MILLIGRAM, QD
     Route: 048
     Dates: start: 20170418, end: 20170920
  11. CYCLOPHOSPHAMIDE. [Suspect]
     Active Substance: CYCLOPHOSPHAMIDE
     Indication: NEPHROTIC SYNDROME
     Dosage: UNK
     Route: 042
     Dates: start: 201703, end: 201708

REACTIONS (3)
  - Acute kidney injury [Recovered/Resolved]
  - Peritonitis viral [Recovered/Resolved]
  - Cytomegalovirus infection [Recovered/Resolved]

NARRATIVE: CASE EVENT DATE: 201801
